FAERS Safety Report 16720745 (Version 1)
Quarter: 2019Q3

REPORT INFORMATION
  Report Type: Spontaneous
  Country: JP (occurrence: JP)
  Receive Date: 20190820
  Receipt Date: 20190820
  Transmission Date: 20191005
  Serious: No
  Sender: FDA-Public Use
  Company Number: JP-BEH-2019105559

PATIENT
  Age: 59 Year
  Sex: Male

DRUGS (4)
  1. SEISHOKU [Concomitant]
     Active Substance: SODIUM CHLORIDE
     Dosage: 10 MILLILITER
     Route: 065
  2. FIBROGAMMIN P [Suspect]
     Active Substance: FACTOR XIII CONCENTRATE (HUMAN)
     Indication: FACTOR XIII DEFICIENCY
  3. TAZOPIPE [Concomitant]
     Active Substance: PIPERACILLIN SODIUM\TAZOBACTAM SODIUM
     Dosage: 13.5 GRAM (4.5 GRAMS THREE TIMES A DAY), QD
     Route: 042
     Dates: start: 20190802
  4. FIBROGAMMIN P [Suspect]
     Active Substance: FACTOR XIII CONCENTRATE (HUMAN)
     Indication: SUTURE RUPTURE
     Dosage: 6 VIALS, QD (ONCE A DAY IN THE MORNING)
     Route: 042
     Dates: start: 20190731, end: 20190804

REACTIONS (3)
  - Injection site induration [Unknown]
  - Injection site swelling [Unknown]
  - Injection site erythema [Unknown]

NARRATIVE: CASE EVENT DATE: 20190804
